FAERS Safety Report 16464431 (Version 1)
Quarter: 2019Q2

REPORT INFORMATION
  Report Type: Spontaneous
  Country: GB (occurrence: GB)
  Receive Date: 20190621
  Receipt Date: 20190621
  Transmission Date: 20190711
  Serious: Yes (Hospitalization)
  Sender: FDA-Public Use
  Company Number: GB-MYLANLABS-MK-6018907

PATIENT
  Age: 22 Month
  Sex: Female

DRUGS (13)
  1. QUININE SULFATE. [Interacting]
     Active Substance: QUININE SULFATE
     Dosage: 10 MILLIGRAM/KILOGRAM, TID
     Route: 042
  2. PARALDEHYDE [Concomitant]
     Active Substance: PARALDEHYDE
     Indication: SEIZURE
     Dosage: UNK
     Route: 054
  3. QUININE [Suspect]
     Active Substance: QUININE
     Indication: PRODUCT USED FOR UNKNOWN INDICATION
     Dosage: 10 MG/KG,TID
     Route: 048
  4. QUININE SULFATE. [Interacting]
     Active Substance: QUININE SULFATE
     Indication: PLASMODIUM FALCIPARUM INFECTION
     Dosage: 20 MILLIGRAM/KILOGRAM, QD
     Route: 042
  5. QUININE SULFATE. [Interacting]
     Active Substance: QUININE SULFATE
     Dosage: UNK (20 MG/KG LOADING DOSE)
     Route: 042
  6. PHENYTOIN. [Interacting]
     Active Substance: PHENYTOIN
     Indication: SEIZURE
  7. TOPIRAMATE. [Concomitant]
     Active Substance: TOPIRAMATE
     Indication: EPILEPSY
     Dosage: UNK
  8. QUININE SULFATE. [Interacting]
     Active Substance: QUININE SULFATE
     Dosage: 6.7 MILLIGRAM/KILOGRAM, TID
     Route: 042
  9. PHENYTOIN. [Interacting]
     Active Substance: PHENYTOIN
     Indication: EPILEPSY
     Dosage: UNK
     Route: 042
  10. SODIUM VALPROATE [Concomitant]
     Active Substance: VALPROATE SODIUM
     Indication: SEIZURE
  11. SULFADOXINE PYRIMETHAMINE [Concomitant]
     Active Substance: PYRIMETHAMINE\SULFADOXINE
     Indication: PLASMODIUM FALCIPARUM INFECTION
     Dosage: UNK
  12. SODIUM VALPROATE [Concomitant]
     Active Substance: VALPROATE SODIUM
     Indication: EPILEPSY
     Dosage: UNK
  13. TOPIRAMATE. [Concomitant]
     Active Substance: TOPIRAMATE
     Indication: SEIZURE

REACTIONS (11)
  - Tachypnoea [Recovered/Resolved]
  - Irritability [Recovered/Resolved]
  - Drug level below therapeutic [Recovered/Resolved]
  - Therapeutic product effect decreased [Recovered/Resolved]
  - Labelled drug-drug interaction medication error [Recovered/Resolved]
  - Plasmodium falciparum infection [Recovered/Resolved]
  - Pyrexia [Recovered/Resolved]
  - Status epilepticus [Unknown]
  - Generalised tonic-clonic seizure [Recovered/Resolved]
  - Tachycardia [Recovered/Resolved]
  - Depressed level of consciousness [Recovered/Resolved]
